FAERS Safety Report 7245444-8 (Version None)
Quarter: 2011Q1

REPORT INFORMATION
  Report Type: 
  Country: None (occurrence: None)
  Receive Date: 20110126
  Receipt Date: 20110118
  Transmission Date: 20110831
  Serious: Yes (Hospitalization)
  Sender: FDA-Public Use
  Company Number: AU-ASTRAZENECA-2011SE02876

PATIENT
  Age: 60 Year
  Sex: Male

DRUGS (7)
  1. GELOFUSINE [Suspect]
     Dates: start: 20101116, end: 20101116
  2. MIDAZOLAM [Suspect]
  3. FENTANYL [Suspect]
  4. EPHEDRINE [Concomitant]
  5. PROPOFOL [Suspect]
     Route: 042
  6. GENTAMYCINE SULPHATE [Suspect]
  7. COVERSYL PLUS [Concomitant]

REACTIONS (7)
  - LIP SWELLING [None]
  - FLUSHING [None]
  - ANGIOEDEMA [None]
  - TACHYCARDIA [None]
  - SWOLLEN TONGUE [None]
  - HYPOTENSION [None]
  - ANAPHYLACTIC REACTION [None]
